FAERS Safety Report 6653479-9 (Version None)
Quarter: 2010Q1

REPORT INFORMATION
  Report Type: 
  Country: None (occurrence: None)
  Receive Date: 20100326
  Receipt Date: 20100323
  Transmission Date: 20100710
  Serious: Yes (Other)
  Sender: FDA-Public Use
  Company Number: JP-ROXANE LABORATORIES, INC.-2010-RO-00316RO

PATIENT
  Age: 7 Year
  Sex: Female

DRUGS (12)
  1. PREDNISONE TAB [Suspect]
     Indication: ACUTE LYMPHOCYTIC LEUKAEMIA
  2. PREDNISONE TAB [Suspect]
     Indication: AUTOIMMUNE THROMBOCYTOPENIA
     Route: 048
  3. DEXAMETHASONE [Suspect]
     Indication: ACUTE LYMPHOCYTIC LEUKAEMIA
  4. CYCLOPHOSPHAMIDE [Suspect]
     Indication: ACUTE LYMPHOCYTIC LEUKAEMIA
  5. MERCAPTOPURINE [Suspect]
     Indication: ACUTE LYMPHOCYTIC LEUKAEMIA
  6. VINCRISTINE [Suspect]
     Indication: ACUTE LYMPHOCYTIC LEUKAEMIA
  7. THP-ADRIAMYCIN [Suspect]
     Indication: ACUTE LYMPHOCYTIC LEUKAEMIA
  8. ELSPAR [Suspect]
     Indication: ACUTE LYMPHOCYTIC LEUKAEMIA
  9. IMMUNE GLOBULIN NOS [Suspect]
     Indication: AUTOIMMUNE THROMBOCYTOPENIA
     Route: 042
  10. ANTI-CD20 ANTIBODY [Suspect]
     Indication: AUTOIMMUNE THROMBOCYTOPENIA
     Dates: start: 20070501
  11. RITUXIMAB [Suspect]
     Indication: AUTOIMMUNE THROMBOCYTOPENIA
     Dates: start: 20070501
  12. ANTI-D IMMUNOGLOBULIN [Suspect]
     Indication: AUTOIMMUNE THROMBOCYTOPENIA
     Route: 030

REACTIONS (4)
  - AUTOIMMUNE THROMBOCYTOPENIA [None]
  - DRUG INEFFECTIVE [None]
  - OSTEOPOROSIS [None]
  - SPINAL COMPRESSION FRACTURE [None]
